FAERS Safety Report 7304898-9 (Version None)
Quarter: 2011Q1

REPORT INFORMATION
  Report Type: 
  Country: None (occurrence: None)
  Receive Date: 20110222
  Receipt Date: 20110215
  Transmission Date: 20110831
  Serious: Yes (Death, Other)
  Sender: FDA-Public Use
  Company Number: UK-SANOFI-AVENTIS-2010SA025068

PATIENT
  Age: 56 Year
  Sex: Male

DRUGS (3)
  1. ENOXAPARIN SODIUM [Suspect]
  2. DANAPAROID [Concomitant]
     Route: 058
  3. HEPARIN [Suspect]
     Dosage: DOSE:5000 UNIT(S)
     Route: 042

REACTIONS (2)
  - HEPARIN-INDUCED THROMBOCYTOPENIA [None]
  - MESENTERIC ARTERY THROMBOSIS [None]
